FAERS Safety Report 22936425 (Version 6)
Quarter: 2025Q3

REPORT INFORMATION
  Report Type: Spontaneous
  Country: EU (occurrence: EU)
  Receive Date: 20230912
  Receipt Date: 20250812
  Transmission Date: 20251021
  Serious: Yes (Other)
  Sender: ALEXION PHARMACEUTICALS
  Company Number: 2023A204753

PATIENT
  Age: 63 Year
  Sex: Female

DRUGS (15)
  1. FULVESTRANT [Suspect]
     Active Substance: FULVESTRANT
     Indication: Product used for unknown indication
     Dosage: 500 MG, Q4W, FREQUENCY: Q4WK
     Dates: start: 201904, end: 201909
  2. FULVESTRANT [Suspect]
     Active Substance: FULVESTRANT
  3. ZOLEDRONIC ACID [Suspect]
     Active Substance: ZOLEDRONIC ACID
     Dosage: 4 MG, Q3MO
     Dates: start: 202305, end: 202308
  4. ZOLEDRONIC ACID [Suspect]
     Active Substance: ZOLEDRONIC ACID
     Dosage: 4 MG, Q3MO
     Route: 065
     Dates: start: 202211, end: 202304
  5. ZOLEDRONIC ACID [Suspect]
     Active Substance: ZOLEDRONIC ACID
     Route: 065
  6. ZOLEDRONIC ACID [Suspect]
     Active Substance: ZOLEDRONIC ACID
     Dosage: 4 MG, Q3MO
     Route: 065
     Dates: start: 202003, end: 202012
  7. ZOLEDRONIC ACID [Suspect]
     Active Substance: ZOLEDRONIC ACID
     Dosage: 4 MG, Q3MO
     Route: 065
     Dates: start: 202012, end: 202211
  8. CAPECITABINE [Suspect]
     Active Substance: CAPECITABINE
     Indication: Product used for unknown indication
     Dosage: 1800 MG, Q12H (FOR 14 DAYS)
     Route: 065
     Dates: start: 201909, end: 202003
  9. EVEROLIMUS [Suspect]
     Active Substance: EVEROLIMUS
     Indication: Product used for unknown indication
     Route: 065
  10. OLAPARIB [Suspect]
     Active Substance: OLAPARIB
     Indication: Product used for unknown indication
     Dosage: 300 MG, Q12H
     Route: 065
     Dates: start: 202012, end: 202211
  11. OLAPARIB [Suspect]
     Active Substance: OLAPARIB
     Dosage: 300 MG, Q12H
     Route: 065
     Dates: start: 202012, end: 202211
  12. DOXORUBICIN [Suspect]
     Active Substance: DOXORUBICIN
     Indication: Product used for unknown indication
     Dosage: UNK UNK, Q3W
     Route: 065
     Dates: start: 202305, end: 202308
  13. EXEMESTANE [Suspect]
     Active Substance: EXEMESTANE
     Indication: Product used for unknown indication
     Dosage: 25 MG, QD
     Route: 065
     Dates: start: 202003, end: 202012
  14. EVEROLIMUS [Suspect]
     Active Substance: EVEROLIMUS
     Indication: Product used for unknown indication
     Route: 065
  15. EXEMESTANE [Suspect]
     Active Substance: EXEMESTANE

REACTIONS (10)
  - Disease progression [Unknown]
  - Stomatitis [Unknown]
  - Pain [Unknown]
  - Dyspnoea [Unknown]
  - Anaemia [Unknown]
  - Bone pain [Unknown]
  - Nausea [Unknown]
  - Fatigue [Unknown]
  - Vomiting [Unknown]
  - Therapeutic product effect incomplete [Unknown]
